FAERS Safety Report 20879570 (Version 2)
Quarter: 2022Q2

REPORT INFORMATION
  Report Type: Spontaneous
  Country: US (occurrence: US)
  Receive Date: 20220526
  Receipt Date: 20220531
  Transmission Date: 20220720
  Serious: Yes (Other)
  Sender: FDA-Public Use
  Company Number: US-PFIZER INC-202200755460

PATIENT
  Sex: Female
  Weight: 70.295 kg

DRUGS (2)
  1. PREMARIN [Suspect]
     Active Substance: ESTROGENS, CONJUGATED
     Dosage: UNK
     Route: 048
     Dates: start: 1991
  2. FASLODEX [Concomitant]
     Active Substance: FULVESTRANT
     Indication: Hormone receptor positive breast cancer
     Dosage: UNK
     Dates: start: 201909

REACTIONS (4)
  - Breast cancer metastatic [Unknown]
  - Abdominal distension [Unknown]
  - Weight increased [Unknown]
  - Contraindicated product administered [Unknown]
